FAERS Safety Report 6862920 (Version 6)
Quarter: 2018Q4

REPORT INFORMATION
  Report Type: Spontaneous
  Country: JP (occurrence: JP)
  Receive Date: 20081221
  Receipt Date: 20181031
  Transmission Date: 20190205
  Serious: Yes (Death, Life-Threatening, Disabling, Other)
  Sender: FDA-Public Use
  Company Number: PHHY2008JP32362

PATIENT
  Age: 78 Year
  Sex: Male
  Weight: 60 kg

DRUGS (5)
  1. GASTER [Concomitant]
     Active Substance: FAMOTIDINE
     Indication: PRODUCT USED FOR UNKNOWN INDICATION
     Dosage: 40 MG, QD
     Route: 048
     Dates: start: 20080818, end: 20081112
  2. PROMAC [Concomitant]
     Active Substance: NITROFURANTOIN
     Indication: PRODUCT USED FOR UNKNOWN INDICATION
     Dosage: 1 G, QD
     Route: 048
     Dates: start: 20080919, end: 20081112
  3. GLIVEC [Suspect]
     Active Substance: IMATINIB MESYLATE
     Indication: GASTROINTESTINAL STROMAL TUMOUR
     Dosage: 400 MG, QD
     Route: 048
     Dates: start: 20080818, end: 20081112
  4. GASTER [Concomitant]
     Active Substance: FAMOTIDINE
     Dosage: 40 MG, QD
     Route: 048
  5. LASIX [Concomitant]
     Active Substance: FUROSEMIDE
     Indication: PLEURAL EFFUSION
     Dosage: 20 MG, QD
     Route: 048
     Dates: start: 20081014, end: 20081112

REACTIONS (12)
  - Pleural effusion [Unknown]
  - Surgery [Fatal]
  - Medical device implantation [Fatal]
  - Renal disorder [Not Recovered/Not Resolved]
  - Liver disorder [Not Recovered/Not Resolved]
  - Fluid retention [Not Recovered/Not Resolved]
  - Pericardial effusion [Unknown]
  - Gastrointestinal perforation [Fatal]
  - Peritonitis [Fatal]
  - Abdominal pain [Fatal]
  - Tumour necrosis [Fatal]
  - Oedema [Unknown]

NARRATIVE: CASE EVENT DATE: 20080825
